FAERS Safety Report 7292974-9 (Version None)
Quarter: 2011Q1

REPORT INFORMATION
  Report Type: 
  Country: None (occurrence: None)
  Receive Date: 20110209
  Receipt Date: 20110209
  Transmission Date: 20110831
  Serious: Yes (Other)
  Sender: FDA-Public Use
  Company Number: None

PATIENT
  Age: 52 Year
  Sex: Female
  Weight: 51.2565 kg

DRUGS (1)
  1. METRONIDAZOLE [Suspect]
     Indication: TOOTH ABSCESS
     Dosage: 500 MG EVERY 6 HOURS PO
     Route: 048
     Dates: start: 20110204, end: 20110206

REACTIONS (2)
  - PARAESTHESIA [None]
  - HYPOAESTHESIA [None]
